FAERS Safety Report 5494683-5 (Version None)
Quarter: 2007Q4

REPORT INFORMATION
  Report Type: 
  Country: None (occurrence: None)
  Receive Date: 20071015
  Receipt Date: 20070828
  Transmission Date: 20080405
  Serious: No
  Sender: FDA-Public Use
  Company Number: 2007SP003024

PATIENT
  Age: 83 Year
  Sex: Male
  Weight: 65.7716 kg

DRUGS (6)
  1. LUNESTA [Suspect]
     Indication: CEREBROVASCULAR ACCIDENT
     Dosage: 3 MG; PRN; ORAL
     Route: 048
     Dates: start: 20070823
  2. ATORVASTATIN CALCIUM [Concomitant]
  3. VITAMINS [Concomitant]
  4. ASPIRIN [Concomitant]
  5. FOLIC ACID [Concomitant]
  6. ZOLOFT [Concomitant]

REACTIONS (1)
  - DYSGEUSIA [None]
